FAERS Safety Report 5731187-6 (Version None)
Quarter: 2008Q2

REPORT INFORMATION
  Report Type: 
  Country: None (occurrence: None)
  Receive Date: 20080507
  Receipt Date: 20080430
  Transmission Date: 20081010
  Serious: Yes (Other)
  Sender: FDA-Public Use
  Company Number: US-BOEHRINGER INGELHEIM GMBH, GERMANY-2008-DE-02586GD

PATIENT
  Age: 36 Year
  Sex: Male

DRUGS (3)
  1. NEVIRAPINE [Suspect]
     Indication: HIV INFECTION
     Dates: start: 20040211
  2. ABACAVIR [Suspect]
     Indication: HIV INFECTION
     Dates: start: 20040211
  3. LAMIVUDINE [Suspect]
     Indication: HIV INFECTION
     Dates: start: 20040211

REACTIONS (3)
  - ALANINE AMINOTRANSFERASE INCREASED [None]
  - HEPATITIS C [None]
  - IMMUNE RECONSTITUTION SYNDROME [None]
